FAERS Safety Report 5117762-0 (Version None)
Quarter: 2006Q3

REPORT INFORMATION
  Report Type: 
  Country: None (occurrence: None)
  Receive Date: 20060929
  Receipt Date: 20060922
  Transmission Date: 20061208
  Serious: Yes (Disabling)
  Sender: FDA-Public Use
  Company Number: MK-GLAXOSMITHKLINE-B0439812A

PATIENT
  Age: 30 Year

DRUGS (2)
  1. FLIXONASE [Suspect]
     Indication: RHINITIS ALLERGIC
     Dosage: 50MCG PER DAY
     Route: 045
     Dates: start: 20060815, end: 20060819
  2. CETIRIZINE HCL [Concomitant]
     Indication: RHINITIS ALLERGIC
     Dates: end: 20060801

REACTIONS (5)
  - EPISTAXIS [None]
  - NASAL DISCOMFORT [None]
  - NASAL DISORDER [None]
  - SNEEZING [None]
  - WOUND [None]
